FAERS Safety Report 7244045-5 (Version None)
Quarter: 2011Q1

REPORT INFORMATION
  Report Type: 
  Country: None (occurrence: None)
  Receive Date: 20110125
  Receipt Date: 20110121
  Transmission Date: 20110831
  Serious: Yes (Death)
  Sender: FDA-Public Use
  Company Number: AU-ASTRAZENECA-2011SE02157

PATIENT
  Age: 11295 Day
  Sex: Male

DRUGS (4)
  1. SEROQUEL [Suspect]
     Dosage: 30 TABLETS OF 300 MILLIGRAMS.
     Route: 048
     Dates: start: 20061203
  2. SEROQUEL [Suspect]
     Indication: SCHIZOAFFECTIVE DISORDER
     Dosage: 1000 MG INITIALLY AND REDUCED TO 300 MG.
     Route: 048
     Dates: start: 20051101, end: 20061202
  3. MIRTAZAPINE [Concomitant]
     Route: 065
  4. SERTRALINE [Concomitant]
     Indication: DEPRESSION
     Dosage: THE DOSAGE INCREASED FROM 200 MILLIGRAMS TO 250 MILLIGRAMS.
     Route: 048
     Dates: start: 20061020, end: 20061203

REACTIONS (2)
  - OVERDOSE [None]
  - COMPLETED SUICIDE [None]
